FAERS Safety Report 10133275 (Version 1)
Quarter: 2014Q2

REPORT INFORMATION
  Report Type: Spontaneous
  Country: US (occurrence: US)
  Receive Date: 20140428
  Receipt Date: 20140428
  Transmission Date: 20141212
  Serious: Yes (Hospitalization)
  Sender: FDA-Public Use
  Company Number: US-ELI_LILLY_AND_COMPANY-US201404005878

PATIENT
  Age: 76 Year
  Sex: Female

DRUGS (6)
  1. HUMULIN NPH [Suspect]
     Indication: TYPE 2 DIABETES MELLITUS
     Dosage: UNK
     Route: 065
  2. METFORMIN [Concomitant]
  3. GLIMEPIRIDE [Concomitant]
  4. LISINOPRIL [Concomitant]
     Dosage: 10 MG, UNKNOWN
  5. SIMVASTATIN [Concomitant]
     Dosage: 20 MG, UNKNOWN
  6. ASPIRIN [Concomitant]
     Dosage: 81 MG, UNKNOWN

REACTIONS (2)
  - Fall [Recovered/Resolved]
  - Medication error [Unknown]
